FAERS Safety Report 7684134-4 (Version None)
Quarter: 2011Q3

REPORT INFORMATION
  Report Type: 
  Country: None (occurrence: None)
  Receive Date: 20110815
  Receipt Date: 20110810
  Transmission Date: 20111222
  Serious: Yes (Other)
  Sender: FDA-Public Use
  Company Number: US-AMGEN-USASP2011037397

PATIENT
  Age: 55 Year
  Sex: Male
  Weight: 149.66 kg

DRUGS (2)
  1. CORTICOSTEROIDS [Concomitant]
     Indication: IDIOPATHIC THROMBOCYTOPENIC PURPURA
     Dosage: UNK
     Dates: start: 20081103
  2. NPLATE [Suspect]
     Indication: IDIOPATHIC THROMBOCYTOPENIC PURPURA
     Dosage: 3 A?G/KG, UNK
     Dates: start: 20081106

REACTIONS (6)
  - MEDICATION ERROR [None]
  - PLATELET COUNT DECREASED [None]
  - PURPURA [None]
  - EMBOLISM [None]
  - PETECHIAE [None]
  - PLATELET COUNT INCREASED [None]
